FAERS Safety Report 18959106 (Version 1)
Quarter: 2021Q1

REPORT INFORMATION
  Report Type: Other
  Country: US (occurrence: US)
  Receive Date: 20210302
  Receipt Date: 20210302
  Transmission Date: 20210420
  Serious: Yes (Hospitalization, Other)
  Sender: FDA-Public Use
  Company Number: US-ALSI-2021000055

PATIENT
  Age: 20 Year
  Sex: Female

DRUGS (1)
  1. NITROUS OXIDE. [Suspect]
     Active Substance: NITROUS OXIDE
     Indication: SUBSTANCE USE
     Route: 055

REACTIONS (6)
  - Subacute combined cord degeneration [Unknown]
  - Dysaesthesia [Recovering/Resolving]
  - Substance use [Unknown]
  - Fall [Unknown]
  - Hypoaesthesia [Unknown]
  - Gait disturbance [Unknown]
